FAERS Safety Report 5493318-5 (Version None)
Quarter: 2007Q4

REPORT INFORMATION
  Report Type: 
  Country: None (occurrence: None)
  Receive Date: 20071023
  Receipt Date: 20070130
  Transmission Date: 20080405
  Serious: No
  Sender: FDA-Public Use
  Company Number: US-BRISTOL-MYERS SQUIBB COMPANY-13662523

PATIENT
  Age: 54 Year
  Sex: Female
  Weight: 90 kg

DRUGS (6)
  1. KENALOG-40 [Suspect]
     Dates: start: 20051101
  2. GLUCOPHAGE [Concomitant]
  3. LISINOPRIL [Concomitant]
  4. ASPIRIN [Concomitant]
  5. PRED FORTE [Concomitant]
     Route: 047
  6. VIGAMOX [Concomitant]
     Route: 047

REACTIONS (4)
  - EPISTAXIS [None]
  - EYE SWELLING [None]
  - OEDEMA PERIPHERAL [None]
  - VITREOUS FLOATERS [None]
